FAERS Safety Report 4430637-5 (Version None)
Quarter: 2004Q3

REPORT INFORMATION
  Report Type: 
  Country: None (occurrence: None)
  Receive Date: 20040818
  Receipt Date: 20040803
  Transmission Date: 20050211
  Serious: Yes (Hospitalization)
  Sender: FDA-Public Use
  Company Number: 01P-087-0110682-00

PATIENT
  Age: 53 Year
  Sex: Female
  Weight: 52.6 kg

DRUGS (9)
  1. BIAXIN [Suspect]
     Indication: GASTRIC ULCER
     Dosage: 200 G, 2 IN 1 D, PER ORAL
     Route: 048
     Dates: start: 20010830, end: 20010830
  2. BIAXIN [Suspect]
     Indication: HELICOBACTER INFECTION
     Dosage: 200 G, 2 IN 1 D, PER ORAL
     Route: 048
     Dates: start: 20010830, end: 20010830
  3. LANSOPRAZOLE [Suspect]
     Indication: GASTRIC ULCER
     Dosage: 30 MG, 2 IN 1 D, PER ORAL
     Route: 048
     Dates: start: 20010830, end: 20010830
  4. LANSOPRAZOLE [Suspect]
     Indication: HELICOBACTER INFECTION
     Dosage: 30 MG, 2 IN 1 D, PER ORAL
     Route: 048
     Dates: start: 20010830, end: 20010830
  5. AMOXICILLIN TRIHYDRATE [Suspect]
     Indication: HELICOBACTER INFECTION
     Dosage: 750 MG, 2 IN 1 D, PER ORAL
     Route: 048
     Dates: start: 20010830, end: 20010830
  6. BUFFERIN [Concomitant]
  7. ALFACALCIDOL [Concomitant]
  8. METHYLPREDNISOLONE [Concomitant]
  9. VALPROATE SODIUM [Concomitant]

REACTIONS (10)
  - ALANINE AMINOTRANSFERASE INCREASED [None]
  - ASPARTATE AMINOTRANSFERASE INCREASED [None]
  - CONJUNCTIVAL HYPERAEMIA [None]
  - DRUG INTERACTION [None]
  - FACE OEDEMA [None]
  - HEPATIC FUNCTION ABNORMAL [None]
  - MAJOR DEPRESSION [None]
  - PIGMENTATION DISORDER [None]
  - RALES [None]
  - TOXIC EPIDERMAL NECROLYSIS [None]
